FAERS Safety Report 4970014-1 (Version None)
Quarter: 2006Q2

REPORT INFORMATION
  Report Type: 
  Country: None (occurrence: None)
  Receive Date: 20060412
  Receipt Date: 20060215
  Transmission Date: 20061013
  Serious: Yes (Other)
  Sender: FDA-Public Use
  Company Number: PHBS2006BE02491

PATIENT
  Age: 60 Year
  Sex: Male

DRUGS (1)
  1. LAMISIL [Suspect]
     Indication: NAIL TINEA
     Route: 048

REACTIONS (3)
  - ARTHRALGIA [None]
  - GENERALISED ERYTHEMA [None]
  - HERPES VIRUS INFECTION [None]
